FAERS Safety Report 7256549-X (Version None)
Quarter: 2011Q1

REPORT INFORMATION
  Report Type: 
  Country: None (occurrence: None)
  Receive Date: 20110129
  Receipt Date: 20100708
  Transmission Date: 20110831
  Serious: No
  Sender: FDA-Public Use
  Company Number: US-ABBOTT-10P-163-0656655-00

PATIENT

DRUGS (11)
  1. HUMIRA [Suspect]
     Indication: RHEUMATOID ARTHRITIS
  2. ENBREL [Concomitant]
     Indication: PSORIATIC ARTHROPATHY
  3. CELEBREX [Concomitant]
     Indication: PSORIATIC ARTHROPATHY
  4. METHOTREXATE [Concomitant]
     Indication: PSORIATIC ARTHROPATHY
  5. ENBREL [Concomitant]
     Indication: RHEUMATOID ARTHRITIS
  6. METHOTREXATE [Concomitant]
     Indication: RHEUMATOID ARTHRITIS
  7. REMICADE [Concomitant]
     Indication: PSORIATIC ARTHROPATHY
  8. CELEBREX [Concomitant]
     Indication: RHEUMATOID ARTHRITIS
  9. AZULFIDINE [Concomitant]
     Indication: PSORIATIC ARTHROPATHY
  10. AZULFIDINE [Concomitant]
     Indication: RHEUMATOID ARTHRITIS
  11. REMICADE [Concomitant]
     Indication: RHEUMATOID ARTHRITIS

REACTIONS (1)
  - DRUG INEFFECTIVE [None]
